FAERS Safety Report 17305439 (Version 1)
Quarter: 2020Q1

REPORT INFORMATION
  Report Type: Spontaneous
  Country: AU (occurrence: AU)
  Receive Date: 20200123
  Receipt Date: 20200123
  Transmission Date: 20200409
  Serious: Yes (Other)
  Sender: FDA-Public Use
  Company Number: AU-SAMSUNG BIOEPIS-SB-2020-01266

PATIENT
  Age: 26 Year
  Sex: Female

DRUGS (5)
  1. AZATHIOPRINE. [Suspect]
     Active Substance: AZATHIOPRINE
     Indication: PRODUCT USED FOR UNKNOWN INDICATION
     Dosage: UNKNOWN
     Route: 065
  2. INFLIXIMAB [Suspect]
     Active Substance: INFLIXIMAB
     Indication: PRODUCT USED FOR UNKNOWN INDICATION
     Route: 065
  3. USTEKINUMAB [Concomitant]
     Active Substance: USTEKINUMAB
     Indication: PRODUCT USED FOR UNKNOWN INDICATION
     Dosage: UNKNOWN
     Route: 065
  4. HUMIRA [Suspect]
     Active Substance: ADALIMUMAB
     Indication: PRODUCT USED FOR UNKNOWN INDICATION
     Route: 058
  5. USTEKINUMAB [Concomitant]
     Active Substance: USTEKINUMAB
     Dosage: DOSE INCREASED TO FOUR WEEKLY
     Route: 065

REACTIONS (16)
  - Abdominal distension [Not Recovered/Not Resolved]
  - Anorectal disorder [Not Recovered/Not Resolved]
  - Drug level abnormal [Unknown]
  - Anorectal discomfort [Recovering/Resolving]
  - Fistula discharge [Unknown]
  - Colitis [Recovering/Resolving]
  - Crohn^s disease [Recovering/Resolving]
  - Proctitis [Unknown]
  - Drug level decreased [Unknown]
  - Drug specific antibody present [Unknown]
  - Embolism arterial [Unknown]
  - Frequent bowel movements [Unknown]
  - Gastrointestinal disorder [Recovering/Resolving]
  - Impaired healing [Not Recovered/Not Resolved]
  - Anal fistula [Unknown]
  - Staphylococcal infection [Unknown]
